FAERS Safety Report 9374731 (Version 1)
Quarter: 2013Q2

REPORT INFORMATION
  Report Type: Spontaneous
  Country: DK (occurrence: DK)
  Receive Date: 20130628
  Receipt Date: 20130628
  Transmission Date: 20140414
  Serious: Yes (Other)
  Sender: FDA-Public Use
  Company Number: DK-BAYER-2013-078217

PATIENT
  Age: 22 Year
  Sex: Female

DRUGS (1)
  1. QLAIRA [Suspect]
     Indication: ADENOMYOSIS
     Dosage: 1 DF, QD
     Route: 048
     Dates: start: 2012, end: 20130402

REACTIONS (3)
  - Pregnancy on contraceptive [Recovered/Resolved]
  - Exposure during pregnancy [Recovered/Resolved]
  - Abortion induced [Not Recovered/Not Resolved]
